FAERS Safety Report 25806116 (Version 1)
Quarter: 2025Q3

REPORT INFORMATION
  Report Type: Spontaneous
  Country: US (occurrence: US)
  Receive Date: 20250916
  Receipt Date: 20250916
  Transmission Date: 20251020
  Serious: Yes (Hospitalization, Other)
  Sender: Medicap Laboratories
  Company Number: US-Medicap-000047

PATIENT
  Age: 43 Year
  Sex: Male

DRUGS (1)
  1. METFORMIN [Suspect]
     Active Substance: METFORMIN HYDROCHLORIDE
     Indication: Product used for unknown indication
     Route: 065

REACTIONS (11)
  - Suicide attempt [Recovered/Resolved]
  - Hyperkalaemia [Recovered/Resolved]
  - Hypervolaemia [Recovered/Resolved]
  - Acute kidney injury [Recovered/Resolved]
  - Mental status changes [Recovered/Resolved]
  - Hypotension [Recovered/Resolved]
  - Gastrointestinal mucosal necrosis [Recovered/Resolved]
  - Renal tubular necrosis [Recovered/Resolved]
  - Haemodynamic instability [Recovered/Resolved]
  - Lactic acidosis [Recovered/Resolved]
  - Intentional overdose [Recovered/Resolved]
